FAERS Safety Report 7400028-3 (Version None)
Quarter: 2011Q2

REPORT INFORMATION
  Report Type: 
  Country: None (occurrence: None)
  Receive Date: 20110407
  Receipt Date: 20110322
  Transmission Date: 20111010
  Serious: Yes (Hospitalization)
  Sender: FDA-Public Use
  Company Number: US-ENDO PHARMACEUTICALS INC.-HCTZ20110004

PATIENT
  Sex: Male
  Weight: 76.726 kg

DRUGS (9)
  1. VEGF TRAP-EYE [Suspect]
     Dosage: 25 MG/200 MG
     Dates: start: 20090709, end: 20100613
  2. METOPROLOL TARTRATE [Concomitant]
     Indication: HYPERTENSION
     Route: 048
     Dates: start: 20070101
  3. LISINOPRIL [Concomitant]
     Indication: HYPERTENSION
     Dosage: UNKNOWN
     Route: 048
     Dates: start: 20021001
  4. LIPITOR [Concomitant]
     Indication: HYPERLIPIDAEMIA
     Route: 048
     Dates: start: 20021001
  5. HYDROCHLOROTHIAZIDE [Suspect]
     Indication: HYPERTENSION
     Route: 048
     Dates: start: 19980101
  6. AMLODIPINE [Concomitant]
     Indication: HYPERTENSION
     Dates: start: 20080301
  7. VEGF TRAP-EYE [Suspect]
     Indication: MACULAR DEGENERATION
     Dosage: 25 MG/200 MG
     Dates: start: 20100713
  8. AGGRENOX [Suspect]
     Indication: ISCHAEMIC CEREBRAL INFARCTION
     Dosage: UNKNOWN
     Route: 048
     Dates: start: 20100208, end: 20110104
  9. DOXAZOSIN [Concomitant]
     Indication: HYPERTENSION
     Route: 048
     Dates: start: 20080101

REACTIONS (1)
  - RENAL FAILURE ACUTE [None]
